FAERS Safety Report 14025054 (Version 1)
Quarter: 2017Q3

REPORT INFORMATION
  Report Type: Spontaneous
  Country: US (occurrence: US)
  Receive Date: 20170929
  Receipt Date: 20170929
  Transmission Date: 20171128
  Serious: No
  Sender: FDA-Public Use
  Company Number: US-TEVA-809489ACC

PATIENT
  Age: 23 Year
  Sex: Female
  Weight: 60.38 kg

DRUGS (2)
  1. PARAGARD T 380A [Suspect]
     Active Substance: COPPER
     Indication: CONTRACEPTION
     Dates: start: 20170831, end: 20170915
  2. XARELTO [Concomitant]
     Active Substance: RIVAROXABAN

REACTIONS (2)
  - Vaginal haemorrhage [Unknown]
  - Device expulsion [Recovered/Resolved]

NARRATIVE: CASE EVENT DATE: 20170915
